FAERS Safety Report 8777257 (Version 1)
Quarter: 2012Q4

REPORT INFORMATION
  Report Type: 
  Country: US (occurrence: US)
  Receive Date: 20120910
  Receipt Date: 20120910
  Transmission Date: 20130627
  Serious: Yes (Hospitalization, Other)
  Sender: FDA-Public Use
  Company Number: US-ASTRAZENECA-2012SE69160

PATIENT
  Age: 84 Year
  Sex: Male
  Weight: 86.2 kg

DRUGS (2)
  1. NEXIUM [Suspect]
     Indication: GASTROOESOPHAGEAL REFLUX DISEASE
     Route: 048
  2. NEXIUM [Suspect]
     Indication: GASTROOESOPHAGEAL REFLUX DISEASE
     Route: 048
     Dates: start: 20100928

REACTIONS (5)
  - Brain stem stroke [Unknown]
  - Cerebrovascular accident [Unknown]
  - Oesophageal disorder [Unknown]
  - Drug dose omission [Unknown]
  - Off label use [Unknown]
